FAERS Safety Report 9259882 (Version 1)
Quarter: 2013Q2

REPORT INFORMATION
  Report Type: Spontaneous
  Country: JP (occurrence: JP)
  Receive Date: 20130429
  Receipt Date: 20130429
  Transmission Date: 20140414
  Serious: Yes (Other)
  Sender: FDA-Public Use
  Company Number: JP-009507513-1304JPN015734

PATIENT
  Age: 69 Year
  Sex: Male

DRUGS (1)
  1. JANUVIA TABLETS 50MG [Suspect]
     Route: 048

REACTIONS (4)
  - Rhabdomyolysis [Unknown]
  - Weight decreased [Unknown]
  - Muscular weakness [Unknown]
  - Hypoaesthesia [Unknown]
